FAERS Safety Report 18082647 (Version 7)
Quarter: 2020Q4

REPORT INFORMATION
  Report Type: Report from Study
  Country: IT (occurrence: IT)
  Receive Date: 20200729
  Receipt Date: 20201029
  Transmission Date: 20210113
  Serious: Yes (Death, Hospitalization)
  Sender: FDA-Public Use
  Company Number: IT-ROCHE-2644408

PATIENT
  Age: 77 Year
  Sex: Male
  Weight: 82 kg

DRUGS (7)
  1. DESAMETASONE [Concomitant]
     Active Substance: DEXAMETHASONE
     Dates: start: 20200527, end: 20200529
  2. CARBOPLATIN. [Suspect]
     Active Substance: CARBOPLATIN
     Indication: SMALL CELL LUNG CANCER EXTENSIVE STAGE
     Dosage: AUC OF 5 MG/ML/MIN?08/JUL/2020, HE RECEIVED MOST RECENT DOSE OF CARBOPLATIN PRIOR TO SAE ONSET.
     Route: 042
     Dates: start: 20200527
  3. GRANISETRONE [Concomitant]
     Dates: start: 20200527, end: 20200529
  4. GRANISETRONE [Concomitant]
     Dates: start: 20200617, end: 20200619
  5. ATEZOLIZUMAB. [Suspect]
     Active Substance: ATEZOLIZUMAB
     Indication: SMALL CELL LUNG CANCER EXTENSIVE STAGE
     Dosage: ON 08/JUL/2020, HE RECEIVED MOST RECENT DOSE OF ATEZOLIZUMAB PRIOR TO SERIOUS ADVERSE EVENT ONSET. D
     Route: 041
     Dates: start: 20200527
  6. ETOPOSIDE. [Suspect]
     Active Substance: ETOPOSIDE
     Indication: SMALL CELL LUNG CANCER EXTENSIVE STAGE
     Dosage: 10/JUL/2020, HE RECEIVED MOST RECENT DOSE OF ETOPOSIDE (150 MG) PRIOR TO SAE ONSET.
     Route: 042
     Dates: start: 20200527
  7. DESAMETASONE [Concomitant]
     Active Substance: DEXAMETHASONE
     Dates: start: 20200617, end: 20200619

REACTIONS (2)
  - Supraventricular tachycardia [Recovered/Resolved]
  - Cardiac failure [Fatal]

NARRATIVE: CASE EVENT DATE: 20200712
